FAERS Safety Report 23939188 (Version 1)
Quarter: 2024Q2

REPORT INFORMATION
  Report Type: Report from Study
  Country: US (occurrence: US)
  Receive Date: 20240604
  Receipt Date: 20240604
  Transmission Date: 20240716
  Serious: Yes (Other)
  Sender: FDA-Public Use
  Company Number: US-ABBVIE-5783945

PATIENT
  Sex: Male

DRUGS (1)
  1. RINVOQ [Suspect]
     Active Substance: UPADACITINIB
     Indication: Rheumatoid arthritis
     Route: 048
     Dates: start: 20191029, end: 20240520

REACTIONS (5)
  - Shoulder arthroplasty [Unknown]
  - Urticaria [Unknown]
  - Hip arthroplasty [Unknown]
  - Urinary tract infection [Unknown]
  - Prostate cancer [Unknown]
